FAERS Safety Report 23769477 (Version 2)
Quarter: 2024Q2

REPORT INFORMATION
  Report Type: Spontaneous
  Country: FR (occurrence: FR)
  Receive Date: 20240422
  Receipt Date: 20240507
  Transmission Date: 20240716
  Serious: Yes (Other)
  Sender: FDA-Public Use
  Company Number: FR-SANOFI-02017451

PATIENT
  Age: 24 Year
  Sex: Female

DRUGS (2)
  1. DUPIXENT [Suspect]
     Active Substance: DUPILUMAB
     Indication: Dermatitis atopic
     Dosage: UNK, QW
     Route: 058
     Dates: start: 202402
  2. NERISONE [Concomitant]
     Active Substance: DIFLUCORTOLONE VALERATE
     Dosage: UNK

REACTIONS (7)
  - Blindness [Unknown]
  - Alopecia areata [Unknown]
  - Condition aggravated [Unknown]
  - Dry skin [Unknown]
  - Respiratory syncytial virus infection [Unknown]
  - Dry eye [Unknown]
  - Eosinophilia [Unknown]

NARRATIVE: CASE EVENT DATE: 20240101
